FAERS Safety Report 19914083 (Version 6)
Quarter: 2022Q2

REPORT INFORMATION
  Report Type: Report from Study
  Country: US (occurrence: US)
  Receive Date: 20211004
  Receipt Date: 20220413
  Transmission Date: 20220720
  Serious: Yes (Hospitalization)
  Sender: FDA-Public Use
  Company Number: US-TAKEDA-2021TUS049964

PATIENT
  Sex: Female
  Weight: 72 kg

DRUGS (20)
  1. HUMAN IMMUNOGLOBULIN G [Suspect]
     Active Substance: HUMAN IMMUNOGLOBULIN G
     Indication: Immunodeficiency common variable
     Dosage: 400 MILLIGRAM/KILOGRAM, Q4WEEKS
     Route: 042
     Dates: start: 20210811
  2. DOXYCYCLINE [Suspect]
     Active Substance: DOXYCYCLINE
     Indication: Product used for unknown indication
     Dosage: UNK
     Route: 065
  3. ACETAMINOPHEN [Concomitant]
     Active Substance: ACETAMINOPHEN
  4. DIPHENHYDRAMINE [Concomitant]
     Active Substance: DIPHENHYDRAMINE
  5. LIDOCAINE [Concomitant]
     Active Substance: LIDOCAINE
  6. SODIUM CHLORIDE [Concomitant]
     Active Substance: SODIUM CHLORIDE
  7. EPINEPHRINE [Concomitant]
     Active Substance: EPINEPHRINE
  8. CELEBREX [Concomitant]
     Active Substance: CELECOXIB
  9. PREDNISONE [Concomitant]
     Active Substance: PREDNISONE
  10. ARAVA [Concomitant]
     Active Substance: LEFLUNOMIDE
  11. VALTREX [Concomitant]
     Active Substance: VALACYCLOVIR HYDROCHLORIDE
  12. METHAZOLAMIDE [Concomitant]
     Active Substance: METHAZOLAMIDE
  13. MIRAPEX [Concomitant]
     Active Substance: PRAMIPEXOLE DIHYDROCHLORIDE
  14. VITAMINS [Concomitant]
     Active Substance: VITAMINS
  15. MACRODANTIN [Concomitant]
     Active Substance: NITROFURANTOIN
  16. PROLIA [Concomitant]
     Active Substance: DENOSUMAB
  17. CALCIUM\CHOLECALCIFEROL [Concomitant]
     Active Substance: CALCIUM\CHOLECALCIFEROL
  18. BIOTIN [Concomitant]
     Active Substance: BIOTIN
  19. MECLIZINE [Concomitant]
     Active Substance: MECLIZINE HYDROCHLORIDE
  20. REMICADE [Concomitant]
     Active Substance: INFLIXIMAB

REACTIONS (8)
  - Spinal operation [Unknown]
  - Rotator cuff syndrome [Unknown]
  - Infection [Unknown]
  - Post procedural infection [Unknown]
  - Arthropathy [Unknown]
  - Urinary tract infection [Unknown]
  - Rash [Unknown]
  - Product dose omission issue [Unknown]
